FAERS Safety Report 14134786 (Version 1)
Quarter: 2017Q4

REPORT INFORMATION
  Report Type: Spontaneous
  Country: US (occurrence: US)
  Receive Date: 20171027
  Receipt Date: 20171027
  Transmission Date: 20180321
  Serious: No
  Sender: FDA-Public Use
  Company Number: US-ASTRAZENECA-2017SF04489

PATIENT
  Sex: Female

DRUGS (2)
  1. FULVESTRANT. [Suspect]
     Active Substance: FULVESTRANT
     Indication: BREAST CANCER METASTATIC
     Route: 030
  2. IBRANCE [Suspect]
     Active Substance: PALBOCICLIB
     Indication: BREAST CANCER METASTATIC
     Route: 048
     Dates: start: 20170707

REACTIONS (8)
  - Leukopenia [Recovering/Resolving]
  - Hair texture abnormal [Unknown]
  - Bone pain [Recovering/Resolving]
  - Asthenia [Recovering/Resolving]
  - Alopecia [Unknown]
  - Constipation [Not Recovered/Not Resolved]
  - Hypoaesthesia [Recovering/Resolving]
  - Fatigue [Recovering/Resolving]
